FAERS Safety Report 7037083-9 (Version None)
Quarter: 2010Q4

REPORT INFORMATION
  Report Type: 
  Country: None (occurrence: None)
  Receive Date: 20101011
  Receipt Date: 20100930
  Transmission Date: 20110411
  Serious: Yes (Hospitalization)
  Sender: FDA-Public Use
  Company Number: US-ASTRAZENECA-2010SE46220

PATIENT
  Age: 61 Year
  Sex: Female

DRUGS (8)
  1. NEXIUM [Suspect]
     Indication: BARRETT'S OESOPHAGUS
     Route: 048
  2. PRILOSEC [Suspect]
     Indication: BARRETT'S OESOPHAGUS
     Route: 048
     Dates: start: 20090401
  3. CRESTOR [Concomitant]
  4. CELEBREX [Concomitant]
  5. ASPIRIN [Concomitant]
  6. PAXIL [Concomitant]
  7. CALCIUM WITH VITAMIN D [Concomitant]
  8. MULTI-VITAMIN [Concomitant]

REACTIONS (5)
  - ANKLE FRACTURE [None]
  - DEEP VEIN THROMBOSIS [None]
  - DYSPEPSIA [None]
  - PULMONARY EMBOLISM [None]
  - UPPER LIMB FRACTURE [None]
